FAERS Safety Report 8297291-6 (Version None)
Quarter: 2012Q2

REPORT INFORMATION
  Report Type: 
  Country: None (occurrence: None)
  Receive Date: 20120416
  Receipt Date: 20120405
  Transmission Date: 20120825
  Serious: Yes (Hospitalization)
  Sender: FDA-Public Use
  Company Number: 7123909

PATIENT
  Age: 51 Year
  Sex: Male

DRUGS (7)
  1. LEXOMIL (BROMAZEPAM) [Concomitant]
  2. CACIT (CALCIUM CARBONATE) [Concomitant]
  3. UN-ALFA (ALFACALCIDOL) [Concomitant]
  4. DEDROGYL (CALCIFEDIOL) [Concomitant]
  5. BIPRETERAX (BIPREDONIUM) (PERINDOPRIL, INDAPAMIDE) [Suspect]
     Indication: PRODUCT USED FOR UNKNOWN INDICATION
     Dosage: ORAL
     Route: 048
     Dates: start: 20111101, end: 20111226
  6. LEVOTHYROXINE SODIUM [Suspect]
     Indication: HYPOTHYROIDISM
     Dosage: 1 DF (1 DF, 1 IN 1 D), ORAL
     Route: 048
     Dates: start: 20110919
  7. LEVOTHYROXINE SODIUM [Suspect]
     Indication: POST PROCEDURAL COMPLICATION
     Dosage: 1 DF (1 DF, 1 IN 1 D), ORAL
     Route: 048
     Dates: start: 20110919

REACTIONS (10)
  - ANGIOTENSIN CONVERTING ENZYME DECREASED [None]
  - NERVOUSNESS [None]
  - HYPERCALCAEMIA [None]
  - DEHYDRATION [None]
  - WEIGHT DECREASED [None]
  - BLOOD POTASSIUM DECREASED [None]
  - CONFUSIONAL STATE [None]
  - ASTHENIA [None]
  - ELECTROCARDIOGRAM QT SHORTENED [None]
  - BLOOD ALKALINE PHOSPHATASE INCREASED [None]
